FAERS Safety Report 6727931-1 (Version None)
Quarter: 2010Q2

REPORT INFORMATION
  Report Type: 
  Country: None (occurrence: None)
  Receive Date: 20100517
  Receipt Date: 20100503
  Transmission Date: 20101027
  Serious: Yes (Other)
  Sender: FDA-Public Use
  Company Number: GE-CELGENEUS-062-50794-10050311

PATIENT
  Age: 72 Year
  Sex: Male

DRUGS (2)
  1. VIDAZA [Suspect]
     Route: 058
     Dates: start: 20080101, end: 20080101
  2. VIDAZA [Suspect]
     Route: 058
     Dates: start: 20080301

REACTIONS (7)
  - ANAEMIA [None]
  - ERYSIPELAS [None]
  - ILEUS [None]
  - INJECTION SITE ERYTHEMA [None]
  - LUNG INFECTION [None]
  - MESENTERIC OCCLUSION [None]
  - MYELODYSPLASTIC SYNDROME TRANSFORMATION [None]
